FAERS Safety Report 17262788 (Version 1)
Quarter: 2020Q1

REPORT INFORMATION
  Report Type: Spontaneous
  Country: ES (occurrence: ES)
  Receive Date: 20200113
  Receipt Date: 20200113
  Transmission Date: 20200409
  Serious: Yes (Other)
  Sender: FDA-Public Use
  Company Number: ES-TEVA-2020-ES-1166808

PATIENT
  Age: 69 Year
  Sex: Female

DRUGS (6)
  1. OXCARBAZEPINA [Concomitant]
     Active Substance: OXCARBAZEPINE
     Route: 048
     Dates: start: 20191017, end: 20191105
  2. ZARATOR 10 MG COMPRIMIDOS , 28 COMPRIMIDOS [Concomitant]
     Indication: DYSLIPIDAEMIA
     Dosage: 10 MG
     Route: 048
     Dates: start: 20120309
  3. ENALAPRIL 20 MG [Concomitant]
     Active Substance: ENALAPRIL
     Indication: HYPERTENSION
     Route: 048
  4. TROMALYT [Concomitant]
     Active Substance: ASPIRIN
     Dosage: 150 MG
     Route: 048
     Dates: start: 20190217
  5. LAMOTRIGINA 25 MG COMPRIMIDOS [Suspect]
     Active Substance: LAMOTRIGINE
     Indication: PARTIAL SEIZURES
     Dosage: 25 MG
     Route: 048
     Dates: start: 20191106, end: 20191106
  6. OXCARBAZEPINA [Concomitant]
     Active Substance: OXCARBAZEPINE
     Indication: PARTIAL SEIZURES
     Dosage: 150 MG
     Route: 048
     Dates: start: 20191105

REACTIONS (1)
  - Hallucination, visual [Recovered/Resolved]

NARRATIVE: CASE EVENT DATE: 20191106
